FAERS Safety Report 6655942-3 (Version None)
Quarter: 2010Q1

REPORT INFORMATION
  Report Type: 
  Country: None (occurrence: None)
  Receive Date: 20100329
  Receipt Date: 20100319
  Transmission Date: 20100710
  Serious: Yes (Other)
  Sender: FDA-Public Use
  Company Number: PHHY2010US11586

PATIENT
  Sex: Female
  Weight: 47.619 kg

DRUGS (1)
  1. RECLAST [Suspect]
     Indication: OSTEOPOROSIS
     Dosage: UNK
     Dates: start: 20091221

REACTIONS (9)
  - BACK PAIN [None]
  - MUSCULAR WEAKNESS [None]
  - MYALGIA [None]
  - MYOFASCITIS [None]
  - NECK PAIN [None]
  - OEDEMA [None]
  - OEDEMA PERIPHERAL [None]
  - OSTEOARTHRITIS [None]
  - PAIN IN EXTREMITY [None]
